FAERS Safety Report 4289181-0 (Version None)
Quarter: 2004Q1

REPORT INFORMATION
  Report Type: 
  Country: None (occurrence: None)
  Receive Date: 20040206
  Receipt Date: 20040130
  Transmission Date: 20041129
  Serious: Yes (Death, Other)
  Sender: FDA-Public Use
  Company Number: 2004-00410

PATIENT
  Age: 12 Year
  Sex: Male

DRUGS (5)
  1. PREDNISONE TAB [Suspect]
     Indication: MEDICATION ERROR
     Dosage: 200 MG BID, ORAL
     Route: 048
     Dates: start: 20021201, end: 20030423
  2. KEPPRA [Concomitant]
  3. VALPROIC ACID [Concomitant]
  4. ZONISAMIDE [Concomitant]
  5. AMITRIPTYLINE [Concomitant]

REACTIONS (2)
  - DIABETIC KETOACIDOSIS [None]
  - MEDICATION ERROR [None]
